FAERS Safety Report 12000000 (Version 1)
Quarter: 2016Q1

REPORT INFORMATION
  Report Type: Spontaneous
  Country: BR (occurrence: BR)
  Receive Date: 20160204
  Receipt Date: 20160204
  Transmission Date: 20160526
  Serious: Yes (Other)
  Sender: FDA-Public Use
  Company Number: BR-NOVOPROD-478804

PATIENT

DRUGS (1)
  1. LEVEMIR [Suspect]
     Active Substance: INSULIN DETEMIR
     Indication: PRODUCT USED FOR UNKNOWN INDICATION
     Dosage: UNK
     Route: 065
     Dates: start: 1978

REACTIONS (7)
  - Insomnia [Unknown]
  - Ocular myasthenia [Unknown]
  - Restless legs syndrome [Unknown]
  - Back disorder [Unknown]
  - Sensorimotor disorder [Unknown]
  - Arteriosclerosis coronary artery [Unknown]
  - Blood glucose abnormal [Unknown]
